FAERS Safety Report 12559161 (Version 3)
Quarter: 2017Q2

REPORT INFORMATION
  Report Type: Spontaneous
  Country: US (occurrence: US)
  Receive Date: 20160715
  Receipt Date: 20170414
  Transmission Date: 20170830
  Serious: No
  Sender: FDA-Public Use
  Company Number: US-TEVA-664597USA

PATIENT
  Age: 59 Year
  Sex: Male

DRUGS (15)
  1. ACETAMINOPHEN. [Concomitant]
     Active Substance: ACETAMINOPHEN
  2. ADVAIR HFA [Concomitant]
     Active Substance: FLUTICASONE PROPIONATE\SALMETEROL XINAFOATE
  3. ALPRAZOLAM. [Concomitant]
     Active Substance: ALPRAZOLAM
  4. FERROUS SULFATE. [Concomitant]
     Active Substance: FERROUS SULFATE
  5. TOPAMAX [Concomitant]
     Active Substance: TOPIRAMATE
     Dosage: 250 MILLIGRAM DAILY;
  6. AMLODIPINE BESILATE [Concomitant]
     Active Substance: AMLODIPINE BESYLATE
     Dosage: 5 MILLIGRAM DAILY;
  7. MULTIVITAMIN [Concomitant]
     Active Substance: VITAMINS
  8. IMITREX [Concomitant]
     Active Substance: SUMATRIPTAN SUCCINATE
     Indication: MIGRAINE
  9. FISH OIL [Concomitant]
     Active Substance: FISH OIL
  10. PROVENTIL [Concomitant]
     Active Substance: ALBUTEROL
     Route: 055
  11. TIZANIDINE. [Concomitant]
     Active Substance: TIZANIDINE
  12. ZECUITY [Suspect]
     Active Substance: SUMATRIPTAN SUCCINATE
     Indication: MIGRAINE
     Route: 062
     Dates: start: 20160526, end: 20160526
  13. HYDROCODONE W/ACETAMINOPHEN [Concomitant]
     Active Substance: ACETAMINOPHEN\HYDROCODONE BITARTRATE
  14. ASPIRIN. [Concomitant]
     Active Substance: ASPIRIN
  15. BUPROPION. [Concomitant]
     Active Substance: BUPROPION

REACTIONS (10)
  - Wrong technique in product usage process [Unknown]
  - Application site pruritus [Recovered/Resolved]
  - Application site erythema [Recovered/Resolved]
  - Application site pain [Recovered/Resolved]
  - Wrong technique in product usage process [Unknown]
  - Drug effect incomplete [Recovered/Resolved]
  - Application site inflammation [Recovered/Resolved]
  - Product physical issue [Unknown]
  - Application site rash [Recovered/Resolved]
  - Application site discomfort [Recovered/Resolved]

NARRATIVE: CASE EVENT DATE: 20160526
